FAERS Safety Report 7269427-7 (Version None)
Quarter: 2011Q1

REPORT INFORMATION
  Report Type: 
  Country: None (occurrence: None)
  Receive Date: 20110124
  Receipt Date: 20110114
  Transmission Date: 20110831
  Serious: Yes (Hospitalization, Other)
  Sender: FDA-Public Use
  Company Number: JPI-P-013507

PATIENT
  Age: 68 Year
  Sex: Female
  Weight: 108.8633 kg

DRUGS (18)
  1. LEVOTHYROXINE SODIUM [Concomitant]
  2. GLIPIZIDE [Concomitant]
  3. DOXORUBICIN HCL [Concomitant]
  4. AMLODIPINE [Concomitant]
  5. LISINOPRIL [Concomitant]
  6. FLUTICASONE AND SALMETEROL [Concomitant]
  7. INSULIN GLARGINE [Concomitant]
  8. CLOMIPRAMINE HCL [Concomitant]
  9. SIMVASTATIN [Concomitant]
  10. FUROSEMDE [Concomitant]
  11. MODAFINIL [Concomitant]
  12. METFORMIN HYDROCHLORIDE [Concomitant]
  13. VALSARTAN [Concomitant]
  14. ATENOLOL [Concomitant]
  15. XYREM [Suspect]
     Indication: CATAPLEXY
     Dosage: 4.5 GM (2.25 GM, 2 IN 1 D), ORAL; 9 GM (4.5 GM, 2 IN 1 D), ORAL; 13.5 GM (6.75 GM, 2 IN 1 D), ORAL
     Route: 048
     Dates: start: 20031020, end: 20080101
  16. XYREM [Suspect]
     Indication: CATAPLEXY
     Dosage: 4.5 GM (2.25 GM, 2 IN 1 D), ORAL; 9 GM (4.5 GM, 2 IN 1 D), ORAL; 13.5 GM (6.75 GM, 2 IN 1 D), ORAL
     Route: 048
     Dates: end: 20110112
  17. XYREM [Suspect]
     Indication: CATAPLEXY
     Dosage: 4.5 GM (2.25 GM, 2 IN 1 D), ORAL; 9 GM (4.5 GM, 2 IN 1 D), ORAL; 13.5 GM (6.75 GM, 2 IN 1 D), ORAL
     Route: 048
     Dates: end: 20080101
  18. PANTOPRAZOLE [Concomitant]

REACTIONS (9)
  - WRIST FRACTURE [None]
  - SWELLING [None]
  - FALL [None]
  - PERIORBITAL HAEMATOMA [None]
  - FACIAL PAIN [None]
  - HEADACHE [None]
  - CONTUSION [None]
  - FACIAL BONES FRACTURE [None]
  - HAEMORRHAGE [None]
